FAERS Safety Report 7471810-1 (Version None)
Quarter: 2011Q2

REPORT INFORMATION
  Report Type: 
  Country: None (occurrence: None)
  Receive Date: 20110511
  Receipt Date: 20100513
  Transmission Date: 20111010
  Serious: No
  Sender: FDA-Public Use
  Company Number: A0860246A

PATIENT
  Age: 52 Year
  Sex: Female

DRUGS (2)
  1. XELODA [Concomitant]
  2. TYKERB [Suspect]
     Dosage: 1000MG PER DAY
     Route: 048
     Dates: start: 20100322

REACTIONS (6)
  - DEPRESSION [None]
  - HEPATIC LESION [None]
  - FEELING ABNORMAL [None]
  - BONE LESION [None]
  - DIARRHOEA [None]
  - DISEASE PROGRESSION [None]
